FAERS Safety Report 8238752-5 (Version None)
Quarter: 2012Q1

REPORT INFORMATION
  Report Type: 
  Country: None (occurrence: None)
  Receive Date: 20120326
  Receipt Date: 20120313
  Transmission Date: 20120608
  Serious: Yes (Death)
  Sender: FDA-Public Use
  Company Number: 2012MA003088

PATIENT
  Age: 49 Year
  Sex: Male
  Weight: 119.296 kg

DRUGS (5)
  1. ALCOHOL [Concomitant]
  2. OXYCODONE HCL [Suspect]
  3. SOMA [Suspect]
  4. MEPROBAMATE [Suspect]
  5. TENAZEPAM CAPSULES, 30 MG (PUREPAC) [Suspect]

REACTIONS (22)
  - BLOOD ALCOHOL INCREASED [None]
  - CONTUSION [None]
  - EYELID OEDEMA [None]
  - ROAD TRAFFIC ACCIDENT [None]
  - SKULL FRACTURE [None]
  - BASAL GANGLIA HAEMORRHAGE [None]
  - ARTERIOSCLEROSIS [None]
  - ASPIRATION [None]
  - EXCORIATION [None]
  - HEAD INJURY [None]
  - CHEST INJURY [None]
  - RIB FRACTURE [None]
  - STERNAL FRACTURE [None]
  - CERVICAL VERTEBRAL FRACTURE [None]
  - LACERATION [None]
  - SOFT TISSUE HAEMORRHAGE [None]
  - PULMONARY CONGESTION [None]
  - NECK INJURY [None]
  - SUBDURAL HAEMORRHAGE [None]
  - BRAIN CONTUSION [None]
  - CRANIOCEREBRAL INJURY [None]
  - SKULL FRACTURED BASE [None]
